FAERS Safety Report 19208292 (Version 2)
Quarter: 2021Q2

REPORT INFORMATION
  Report Type: Spontaneous
  Country: IT (occurrence: IT)
  Receive Date: 20210503
  Receipt Date: 20210518
  Transmission Date: 20210717
  Serious: Yes (Other)
  Sender: FDA-Public Use
  Company Number: IT-AUROBINDO-AUR-APL-2021-017173

PATIENT
  Age: 42 Year
  Sex: Female

DRUGS (2)
  1. TRIPROLIDINE [Concomitant]
     Active Substance: TRIPROLIDINE
     Indication: INFLUENZA
     Dosage: UNK
     Route: 065
     Dates: start: 2016
  2. PARACETAMOL [Suspect]
     Active Substance: ACETAMINOPHEN
     Indication: INFLUENZA
     Dosage: 1000 MILLIGRAM, ONCE A DAY
     Route: 065
     Dates: start: 2016

REACTIONS (4)
  - Hypersensitivity [Recovered/Resolved]
  - Erythema annulare [Recovered/Resolved]
  - Condition aggravated [Recovered/Resolved]
  - Product use in unapproved indication [Unknown]

NARRATIVE: CASE EVENT DATE: 201604
